FAERS Safety Report 9168630 (Version 2)
Quarter: 2013Q2

REPORT INFORMATION
  Report Type: Spontaneous
  Country: BR (occurrence: BR)
  Receive Date: 20130318
  Receipt Date: 20130417
  Transmission Date: 20140414
  Serious: Yes (Other)
  Sender: FDA-Public Use
  Company Number: BR-PFIZER INC-2013087289

PATIENT
  Sex: Female

DRUGS (6)
  1. LYRICA [Suspect]
     Indication: FIBROMYALGIA
     Dosage: 75 MG, UNSPECIFIED FREQUENCY
     Route: 048
     Dates: start: 20130223
  2. LYRICA [Suspect]
     Dosage: 150 MG, UNSPECIFIED FREQUENCY
     Dates: end: 201302
  3. SERTRALINE HCL [Suspect]
     Dosage: UNK
     Dates: start: 201301, end: 20130305
  4. CARBAMAZEPINE [Suspect]
     Dosage: UNK
     Dates: start: 201301, end: 20130302
  5. CLOMIPRAMINE [Concomitant]
  6. GEODON [Concomitant]

REACTIONS (3)
  - Generalised oedema [Not Recovered/Not Resolved]
  - Oedema peripheral [Not Recovered/Not Resolved]
  - Drug ineffective [Unknown]
